FAERS Safety Report 8432329-4 (Version None)
Quarter: 2012Q2

REPORT INFORMATION
  Report Type: 
  Country: None (occurrence: None)
  Receive Date: 20120613
  Receipt Date: 20120610
  Transmission Date: 20120825
  Serious: Yes (Other)
  Sender: FDA-Public Use
  Company Number: PHHY2012QA049965

PATIENT
  Age: 74 Year
  Sex: Female

DRUGS (1)
  1. STALEVO 100 [Suspect]
     Indication: DRUG EFFECT DECREASED
     Dosage: 100 MG, FOUR TIMES DAILY
     Route: 048

REACTIONS (2)
  - AGITATION [None]
  - AGGRESSION [None]
